FAERS Safety Report 9470421 (Version 1)
Quarter: 2013Q3

REPORT INFORMATION
  Report Type: Spontaneous
  Country: US (occurrence: None)
  Receive Date: 20130820
  Receipt Date: 20130820
  Transmission Date: 20140515
  Serious: Yes (Other)
  Sender: FDA-Public Use
  Company Number: None

PATIENT
  Age: 52 Year
  Sex: Female
  Weight: 170.1 kg

DRUGS (1)
  1. VENLAFAXINE HCL ER [Suspect]
     Indication: DEPRESSION
     Route: 048
     Dates: start: 20130729, end: 20130828

REACTIONS (1)
  - Paraesthesia [None]
